FAERS Safety Report 15699455 (Version 1)
Quarter: 2018Q4

REPORT INFORMATION
  Report Type: Spontaneous
  Country: US (occurrence: US)
  Receive Date: 20181126
  Receipt Date: 20181126
  Transmission Date: 20190205
  Serious: No
  Sender: FDA-Public Use
  Company Number: None

PATIENT
  Age: 52 Year
  Sex: Male
  Weight: 106.14 kg

DRUGS (1)
  1. CIMZIA [Suspect]
     Active Substance: CERTOLIZUMAB PEGOL
     Indication: PSORIATIC ARTHROPATHY
     Dosage: INJECT 400MG (2 SYRINGES) SUBCUTANEOUSLY EVERY AT WEEKS  0.2 AND  4  AS DIRECTED
     Route: 058

REACTIONS (2)
  - Influenza [None]
  - Malaise [None]
